FAERS Safety Report 5381097-1 (Version None)
Quarter: 2007Q3

REPORT INFORMATION
  Report Type: 
  Country: None (occurrence: None)
  Receive Date: 20070706
  Receipt Date: 20070625
  Transmission Date: 20080115
  Serious: Yes (Other)
  Sender: FDA-Public Use
  Company Number: IE-PFIZER INC-2007016097

PATIENT
  Age: 65 Year
  Sex: Female

DRUGS (9)
  1. CHAMPIX [Suspect]
     Indication: SMOKING CESSATION THERAPY
     Dosage: FREQ:DAILY:EVERY DAY
     Route: 048
  2. FOSAMAX [Concomitant]
     Route: 048
  3. INDERAL [Concomitant]
     Route: 048
  4. IDEOS [Concomitant]
     Route: 048
  5. ALL OTHER THERAPEUTIC PRODUCTS [Concomitant]
     Route: 061
  6. ALL OTHER THERAPEUTIC PRODUCTS [Concomitant]
     Route: 048
  7. DALMANE [Concomitant]
     Route: 048
  8. DRUG, UNSPECIFIED [Concomitant]
  9. ZYDOL - SLOW RELEASE [Concomitant]

REACTIONS (2)
  - ARTHRALGIA [None]
  - RHEUMATOID FACTOR POSITIVE [None]
